FAERS Safety Report 15753797 (Version 7)
Quarter: 2019Q1

REPORT INFORMATION
  Report Type: Report from Study
  Country: None (occurrence: NL)
  Receive Date: 20181222
  Receipt Date: 20190321
  Transmission Date: 20190417
  Serious: Yes (Other)
  Sender: FDA-Public Use
  Company Number: NL-ABBVIE-18S-114-2595746-00

PATIENT
  Age: 63 Year
  Sex: Male

DRUGS (6)
  1. ROPINIROLE. [Concomitant]
     Active Substance: ROPINIROLE
     Dosage: DECREASED TO 3 TIMES 1 MG
  2. DUODOPA [Suspect]
     Active Substance: CARBIDOPA\LEVODOPA
     Indication: PARKINSON^S DISEASE
     Dosage: 16 HOUR TREATMENT ?NEED ED AT THE END OF MORNING AND AFTERNOON
     Route: 050
     Dates: start: 20181119
  3. FUCIDINE [Concomitant]
     Indication: PRODUCT USED FOR UNKNOWN INDICATION
     Dates: start: 20190309
  4. ROPINIROLE. [Concomitant]
     Active Substance: ROPINIROLE
     Indication: PARKINSON^S DISEASE
     Dosage: DECREASED TO 3 TIMES 1 MG.
  5. PARACETAMOL [Concomitant]
     Active Substance: ACETAMINOPHEN
     Indication: PRODUCT USED FOR UNKNOWN INDICATION
  6. LAXANS [Concomitant]
     Indication: ABNORMAL FAECES

REACTIONS (20)
  - Stoma site odour [Recovered/Resolved]
  - On and off phenomenon [Unknown]
  - Abdominal pain [Not Recovered/Not Resolved]
  - Medical device site scab [Not Recovered/Not Resolved]
  - Stoma site induration [Not Recovered/Not Resolved]
  - Gastrointestinal stoma complication [Not Recovered/Not Resolved]
  - Stoma site erythema [Unknown]
  - Fatigue [Not Recovered/Not Resolved]
  - Dyskinesia [Not Recovered/Not Resolved]
  - Stoma site infection [Recovered/Resolved]
  - Gastrointestinal haemorrhage [Not Recovered/Not Resolved]
  - Abdominal rigidity [Not Recovered/Not Resolved]
  - Hallucination [Not Recovered/Not Resolved]
  - Stoma site discharge [Not Recovered/Not Resolved]
  - Urinary tract infection [Recovered/Resolved]
  - Stoma site discomfort [Not Recovered/Not Resolved]
  - Musculoskeletal stiffness [Not Recovered/Not Resolved]
  - Gastrointestinal disorder [Unknown]
  - Stoma site erythema [Recovered/Resolved]
  - Stoma site extravasation [Recovered/Resolved]

NARRATIVE: CASE EVENT DATE: 2018
